FAERS Safety Report 9976511 (Version 1)
Quarter: 2014Q1

REPORT INFORMATION
  Report Type: Report from Study
  Country: US (occurrence: US)
  Receive Date: 20140306
  Receipt Date: 20140306
  Transmission Date: 20141002
  Serious: No
  Sender: FDA-Public Use
  Company Number: US-ABBVIE-13P-163-1167081-00

PATIENT
  Age: 57 Year
  Sex: Male

DRUGS (8)
  1. HUMIRA [Suspect]
     Indication: RHEUMATOID ARTHRITIS
     Dosage: (BUT TO START 40MG WEEKLY DOSE 11 NOV 2013)
     Dates: start: 20130909, end: 201311
  2. HUMIRA [Suspect]
     Dosage: (BUT TO START 40MG WEEKLY DOSE 11 NOV 2013)
     Dates: start: 20131111
  3. METHOTREXATE [Concomitant]
     Indication: RHEUMATOID ARTHRITIS
     Dosage: 2.5MG TABLETS 4 TABLETS ON FRIDAY, 4 TABLETS ON SATURDAY WEEKLY
  4. LISINOPRIL [Concomitant]
     Indication: BLOOD PRESSURE
  5. PROTONIX [Concomitant]
     Indication: GASTROINTESTINAL DISORDER
  6. CLONIDINE [Concomitant]
     Indication: PRODUCT USED FOR UNKNOWN INDICATION
     Dosage: 0.2MG DAILY
  7. DURAGESIC PATCH [Concomitant]
     Indication: BACK PAIN
     Dosage: 75MG DAILY
  8. NARCO [Concomitant]
     Indication: BACK PAIN

REACTIONS (1)
  - Drug ineffective [Not Recovered/Not Resolved]
